FAERS Safety Report 19126225 (Version 2)
Quarter: 2021Q2

REPORT INFORMATION
  Report Type: Spontaneous
  Country: US (occurrence: US)
  Receive Date: 20210412
  Receipt Date: 20210526
  Transmission Date: 20210717
  Serious: Yes (Death, Other)
  Sender: FDA-Public Use
  Company Number: US-PFIZER INC-2021352099

PATIENT
  Age: 70 Year
  Sex: Female
  Weight: 52.1 kg

DRUGS (13)
  1. ASPIRIN [ACETYLSALICYLIC ACID] [Concomitant]
     Active Substance: ASPIRIN
     Dosage: 81 MG
  2. EDARBI [Concomitant]
     Active Substance: AZILSARTAN KAMEDOXOMIL
     Dosage: 40 MG
  3. CALCIUM MAGNESIUM ZINC [CALCIUM;MAGNESIUM;ZINC] [Concomitant]
     Dosage: UNK
  4. TUMS [Concomitant]
     Active Substance: CALCIUM CARBONATE
     Dosage: 500 MG, AS NEEDED
  5. VITAMIN B12 [VITAMIN B12 NOS] [Concomitant]
     Active Substance: CYANOCOBALAMIN
     Dosage: 1000 UG
  6. CYMBALTA [Concomitant]
     Active Substance: DULOXETINE HYDROCHLORIDE
     Dosage: 30 MG
  7. LORAZEPAM. [Concomitant]
     Active Substance: LORAZEPAM
     Dosage: 1 MG
  8. IBRANCE [Suspect]
     Active Substance: PALBOCICLIB
     Indication: BREAST CANCER FEMALE
     Dosage: 100 MG, (21 DAYS, 7 DAYS OFF)
     Route: 048
     Dates: start: 20190712
  9. CARVEDILOL. [Concomitant]
     Active Substance: CARVEDILOL
     Dosage: 12.5 MG
  10. SIMETHICONE (DIMETHICONE) [Concomitant]
     Active Substance: DIMETHICONE
     Dosage: 125 MG
  11. VITAMIN D [VITAMIN D NOS] [Concomitant]
     Active Substance: VITAMIN D NOS
     Dosage: 1,000 UNITS
  12. FEMARA [Concomitant]
     Active Substance: LETROZOLE
     Dosage: 2.5 MG
  13. BENADRYL [Concomitant]
     Active Substance: DIPHENHYDRAMINE HYDROCHLORIDE
     Dosage: 25 MG

REACTIONS (2)
  - Neoplasm progression [Unknown]
  - Death [Fatal]

NARRATIVE: CASE EVENT DATE: 20210323
